APPROVED DRUG PRODUCT: KETOROLAC TROMETHAMINE
Active Ingredient: KETOROLAC TROMETHAMINE
Strength: 15MG/ML
Dosage Form/Route: INJECTABLE;INJECTION
Application: A203242 | Product #001
Applicant: FRESENIUS KABI USA LLC
Approved: Oct 7, 2015 | RLD: No | RS: No | Type: DISCN